FAERS Safety Report 12547979 (Version 1)
Quarter: 2016Q3

REPORT INFORMATION
  Report Type: Spontaneous
  Country: US (occurrence: US)
  Receive Date: 20160712
  Receipt Date: 20160712
  Transmission Date: 20161109
  Serious: Yes (Other)
  Sender: FDA-Public Use
  Company Number: US-LUPIN PHARMACEUTICALS INC.-2016-03051

PATIENT
  Sex: Male

DRUGS (1)
  1. ZIPRASIDONE. [Suspect]
     Active Substance: ZIPRASIDONE
     Indication: PRODUCT USED FOR UNKNOWN INDICATION
     Route: 065

REACTIONS (2)
  - Suicidal ideation [Unknown]
  - Therapy cessation [Unknown]
